FAERS Safety Report 9113485 (Version 3)
Quarter: 2014Q3

REPORT INFORMATION
  Report Type: Spontaneous
  Country: US (occurrence: US)
  Receive Date: 20130129
  Receipt Date: 20140819
  Transmission Date: 20150326
  Serious: Yes (Other)
  Sender: FDA-Public Use
  Company Number: US-009507513-1301USA012561

PATIENT
  Sex: Female
  Weight: 113.38 kg

DRUGS (1)
  1. NUVARING [Suspect]
     Active Substance: ETHINYL ESTRADIOL\ETONOGESTREL
     Indication: CONTRACEPTION
     Dosage: INSERT VAGINALLY X 3WKS, REMOVE AND LEAVE OUT FOR 1 WK.
     Route: 067
     Dates: start: 200701, end: 20100522

REACTIONS (8)
  - Peripheral vascular disorder [Unknown]
  - Cardiovascular disorder [Unknown]
  - Abortion spontaneous [Recovered/Resolved]
  - Deep vein thrombosis [Unknown]
  - Deep vein thrombosis [Unknown]
  - Exposure during pregnancy [Unknown]
  - Thrombosis [Unknown]
  - Hypertension [Unknown]

NARRATIVE: CASE EVENT DATE: 2007
